FAERS Safety Report 7778157-4 (Version None)
Quarter: 2011Q3

REPORT INFORMATION
  Report Type: 
  Country: None (occurrence: None)
  Receive Date: 20110926
  Receipt Date: 20110921
  Transmission Date: 20111222
  Serious: Yes (Death)
  Sender: FDA-Public Use
  Company Number: TN-SANOFI-AVENTIS-2011SA062087

PATIENT
  Age: 71 Year
  Sex: Male

DRUGS (9)
  1. CAPTOPRIL [Concomitant]
     Route: 048
     Dates: end: 20110214
  2. TORENTAL [Concomitant]
     Route: 048
     Dates: end: 20110214
  3. PLAVIX [Suspect]
     Indication: MYOCARDIAL INFARCTION
     Route: 048
     Dates: start: 20101210, end: 20110214
  4. ASPIRIN [Concomitant]
     Route: 048
     Dates: end: 20110214
  5. FAMODINE [Concomitant]
     Route: 048
     Dates: end: 20110214
  6. PLAVIX [Suspect]
     Indication: STENT PLACEMENT
     Route: 048
     Dates: start: 20101210, end: 20110214
  7. GLYBURIDE [Concomitant]
     Route: 048
     Dates: end: 20110214
  8. CRESTOR [Concomitant]
     Route: 048
     Dates: end: 20110214
  9. BISOPROLOL FUMARATE [Concomitant]
     Route: 048
     Dates: end: 20110214

REACTIONS (1)
  - CARDIAC ARREST [None]
